FAERS Safety Report 6354737-8 (Version None)
Quarter: 2009Q3

REPORT INFORMATION
  Report Type: 
  Country: None (occurrence: None)
  Receive Date: 20090914
  Receipt Date: 20090902
  Transmission Date: 20100115
  Serious: Yes (Other)
  Sender: FDA-Public Use
  Company Number: CA-JNJFOC-20090901837

PATIENT
  Sex: Female
  Weight: 84 kg

DRUGS (7)
  1. REMICADE [Suspect]
     Indication: CROHN'S DISEASE
     Dosage: TOTAL OF 72 DOSES RECEIVED
     Route: 042
  2. SULFA BASED ANTIBIOTICS [Suspect]
     Indication: ANIMAL BITE
  3. PREDNISONE [Concomitant]
  4. CALCIUM [Concomitant]
  5. TYLENOL (CAPLET) [Concomitant]
     Indication: PREMEDICATION
     Route: 048
  6. BENADRYL [Concomitant]
     Indication: PREMEDICATION
     Route: 042
  7. SOLU-CORTEF [Concomitant]
     Indication: PREMEDICATION
     Route: 042

REACTIONS (4)
  - ANIMAL BITE [None]
  - DRUG HYPERSENSITIVITY [None]
  - PSORIASIS [None]
  - TOOTH FRACTURE [None]
